FAERS Safety Report 10174840 (Version 1)
Quarter: 2014Q2

REPORT INFORMATION
  Report Type: Spontaneous
  Country: US (occurrence: US)
  Receive Date: 20140515
  Receipt Date: 20140515
  Transmission Date: 20141212
  Serious: No
  Sender: FDA-Public Use
  Company Number: US-PFIZER INC-2014131435

PATIENT
  Age: 57 Year
  Sex: Female
  Weight: 91 kg

DRUGS (8)
  1. COLESTIPOL HCL [Suspect]
     Indication: BLOOD CHOLESTEROL INCREASED
     Dosage: 1000 MG, 1X/DAY
     Route: 048
     Dates: start: 201311, end: 201402
  2. COLESTIPOL HCL [Suspect]
     Dosage: 5000 MG, 2X/DAY (5 TABLETS OF 1000MG IN MORNING AND 5 TABLETS OF 1000MG AT NIGHT)
     Route: 048
     Dates: start: 201402, end: 2014
  3. COLESTIPOL HCL [Suspect]
     Dosage: 1000 MG, 2X/DAY
     Dates: start: 2014, end: 2014
  4. COLESTIPOL HCL [Suspect]
     Dosage: 2000 MG, 2X/DAY (BY TAKING 2 TABLETS OF 1000MG TWO TIMES A DAY)
     Dates: start: 2014
  5. METOPROLOL [Concomitant]
     Indication: HYPERTENSION
     Dosage: 100 MG, 2X/DAY
  6. NORVASC [Concomitant]
     Indication: HYPERTENSION
     Dosage: 5 MG, 1X/DAY
  7. CITALOPRAM [Concomitant]
     Dosage: 40 MG, 1X/DAY
  8. ALPRAZOLAM [Concomitant]
     Dosage: 0.5 MG, AS NEEDED
     Route: 048

REACTIONS (3)
  - Weight increased [Unknown]
  - Muscle spasms [Recovered/Resolved]
  - Muscle spasms [Recovered/Resolved]
